FAERS Safety Report 10174699 (Version 1)
Quarter: 2014Q2

REPORT INFORMATION
  Report Type: Spontaneous
  Country: CA (occurrence: CA)
  Receive Date: 20140515
  Receipt Date: 20140515
  Transmission Date: 20141212
  Serious: Yes (Other)
  Sender: FDA-Public Use
  Company Number: CA-ROCHE-1396382

PATIENT
  Sex: Female

DRUGS (12)
  1. PERJETA [Suspect]
     Indication: PRODUCT USED FOR UNKNOWN INDICATION
     Dosage: THERAPY DURATION: 22 DAYS
     Route: 042
  2. HERCEPTIN [Suspect]
     Indication: PRODUCT USED FOR UNKNOWN INDICATION
     Dosage: THERAPY DURATION: 21 DAYS
     Route: 042
  3. TAXOTERE [Suspect]
     Indication: PRODUCT USED FOR UNKNOWN INDICATION
     Dosage: THERAPY DURATION: 21 DAYS
     Route: 042
  4. CELEBREX [Concomitant]
     Route: 065
  5. CLONAZEPAM [Concomitant]
     Route: 065
  6. CRESTOR [Concomitant]
     Route: 065
  7. DEXAMETHASONE [Concomitant]
     Route: 065
  8. ERGOCALCIFEROL [Concomitant]
     Route: 065
  9. IMMUNE GLOBULIN, INTRAVENOUS [Concomitant]
     Route: 065
  10. LEUKERAN [Concomitant]
     Route: 065
  11. PAXIL [Concomitant]
     Route: 065
  12. VITAMIN B COMPLEX [Concomitant]
     Route: 065

REACTIONS (7)
  - Diarrhoea [Not Recovered/Not Resolved]
  - Dry mouth [Not Recovered/Not Resolved]
  - Dry skin [Not Recovered/Not Resolved]
  - Dyspnoea [Not Recovered/Not Resolved]
  - Fatigue [Not Recovered/Not Resolved]
  - Headache [Not Recovered/Not Resolved]
  - Swelling face [Not Recovered/Not Resolved]
